FAERS Safety Report 8985427 (Version 1)
Quarter: 2012Q4

REPORT INFORMATION
  Report Type: 
  Country: IT (occurrence: IT)
  Receive Date: 20121226
  Receipt Date: 20121226
  Transmission Date: 20130627
  Serious: Yes (Other)
  Sender: FDA-Public Use
  Company Number: IT-TEVA-376730ISR

PATIENT
  Age: 61 Year
  Sex: Female

DRUGS (2)
  1. CISPLATIN [Suspect]
     Indication: GASTRIC CANCER
     Dosage: 110 Milligram Daily;
     Route: 042
     Dates: start: 20120830, end: 20121122
  2. TAXOTERE [Suspect]
     Indication: GASTRIC CANCER
     Dosage: 110 Milligram Daily;
     Route: 042
     Dates: start: 20120921, end: 20120921

REACTIONS (1)
  - Bone marrow toxicity [Not Recovered/Not Resolved]
